FAERS Safety Report 4457782-2 (Version None)
Quarter: 2004Q3

REPORT INFORMATION
  Report Type: 
  Country: None (occurrence: None)
  Receive Date: 20040917
  Receipt Date: 20031124
  Transmission Date: 20050211
  Serious: Yes (Other)
  Sender: FDA-Public Use
  Company Number: NSADSS2002047366

PATIENT
  Age: 42 Year
  Sex: Female
  Weight: 56.246 kg

DRUGS (4)
  1. TOPAMAX [Suspect]
     Indication: AFFECTIVE DISORDER
     Dosage: 50 MG, ORAL
     Route: 048
     Dates: start: 20021101
  2. VALIUM [Concomitant]
  3. PERCOCET [Concomitant]
  4. AMBIEN [Concomitant]

REACTIONS (2)
  - ANGLE CLOSURE GLAUCOMA [None]
  - HEADACHE [None]
